FAERS Safety Report 14577479 (Version 2)
Quarter: 2018Q1

REPORT INFORMATION
  Report Type: Spontaneous
  Country: CH (occurrence: CH)
  Receive Date: 20180227
  Receipt Date: 20180301
  Transmission Date: 20180509
  Serious: Yes (Hospitalization, Other)
  Sender: FDA-Public Use
  Company Number: CH-PFIZER INC-2018082731

PATIENT
  Age: 59 Year
  Sex: Male

DRUGS (1)
  1. METHOTREXATE SODIUM. [Suspect]
     Active Substance: METHOTREXATE SODIUM
     Indication: DERMATITIS ATOPIC
     Dosage: 10 MG, DAILY (10 MG,1 IN 1 D)
     Route: 048
     Dates: start: 20171204, end: 20171214

REACTIONS (7)
  - Inappropriate schedule of drug administration [Recovered/Resolved]
  - Drug level increased [Recovered/Resolved]
  - Dyspnoea [Recovered/Resolved]
  - Nasopharyngitis [Recovered/Resolved]
  - Accidental overdose [Recovered/Resolved]
  - Mucosal inflammation [Recovered/Resolved]
  - Toxicity to various agents [Recovered/Resolved]

NARRATIVE: CASE EVENT DATE: 201712
